FAERS Safety Report 7222484 (Version 3)
Quarter: 2013Q2

REPORT INFORMATION
  Report Type: Spontaneous
  Country: US (occurrence: None)
  Receive Date: 20091202
  Receipt Date: 20130501
  Transmission Date: 20140414
  Serious: Yes (Other)
  Sender: FDA-Public Use
  Company Number: AUR-APL-2009-01303

PATIENT
  Age: 48 Year
  Sex: Male
  Weight: 99.3 kg

DRUGS (12)
  1. ATENOLOL (ATENOLOL) [Suspect]
     Indication: CARDIAC DISORDER
     Dosage: 50MG
  2. METFORMIN (METFORMIN) [Suspect]
     Indication: DIABETES MELLITUS
     Dosage: 1700 MG (850 MG, TWICE IN A D)
  3. FLUOXETINE (FLUOXETINE) [Suspect]
     Indication: PRODUCT USED FOR UNKNOWN INDICATION
     Dosage: 40 MG (20 MG, TWICE IN A DAY)
  4. LISINOPRIL (LISINOPRIL) [Suspect]
     Indication: CARDIAC DISORDER
     Dosage: 80 MG (40 MG,TWICE IN A DAY)
  5. OMEPRAZOLE (OMEPRAZOLE) [Suspect]
     Indication: GASTROINTESTINAL DISORDER
     Dosage: 40 MG (20 MG, TWICE IN A DAY)
  6. HALOPERIDOL [Suspect]
     Indication: PRODUCT USED FOR UNKNOWN INDICATION
  7. LITHIUM CARBONATE [Suspect]
     Indication: PRODUCT USED FOR UNKNOWN INDICATION
  8. LOVASTATIN [Suspect]
     Indication: CARDIAC DISORDER
  9. GEMFIBROZIL [Suspect]
     Indication: PRODUCT USED FOR UNKNOWN INDICATION
     Dosage: 120 MG (60 MG, 2 IN 1 D)
  10. NIFEDIPINE [Suspect]
     Indication: CARDIAC DISORDER
  11. CHANTIX (VARENICLINE) [Suspect]
     Indication: SMOKING CESSATION THERAPY
     Route: 048
     Dates: start: 2009
  12. NITROGLYCERIN [Suspect]
     Indication: CHEST PAIN

REACTIONS (9)
  - Mood swings [None]
  - Insomnia [None]
  - Thinking abnormal [None]
  - Aggression [None]
  - Disturbance in attention [None]
  - Chest pain [None]
  - Loss of consciousness [None]
  - Verbal abuse [None]
  - Drug interaction [None]
